FAERS Safety Report 16859938 (Version 1)
Quarter: 2019Q4

REPORT INFORMATION
  Report Type: Spontaneous
  Country: US (occurrence: US)
  Receive Date: 20190927
  Receipt Date: 20190927
  Transmission Date: 20200122
  Serious: Yes (Other)
  Sender: FDA-Public Use
  Company Number: None

PATIENT
  Age: 48 Year
  Sex: Male
  Weight: 80.1 kg

DRUGS (9)
  1. VELCADE [Concomitant]
     Active Substance: BORTEZOMIB
  2. REVLIMID [Concomitant]
     Active Substance: LENALIDOMIDE
  3. ACYCLOVIR. [Concomitant]
     Active Substance: ACYCLOVIR
  4. ASPIRIN. [Concomitant]
     Active Substance: ASPIRIN
  5. DEXAMETHASONE. [Concomitant]
     Active Substance: DEXAMETHASONE
  6. ULTRAM [Concomitant]
     Active Substance: TRAMADOL HYDROCHLORIDE
  7. BACLOFEN. [Concomitant]
     Active Substance: BACLOFEN
  8. VITAMIN D [Concomitant]
     Active Substance: VITAMIN D NOS
  9. IMIQUIMOD 5% TOPICAL CREAM 0.25G SINGLE APPLICATION PACKAGES [Suspect]
     Active Substance: IMIQUIMOD
     Indication: BASAL CELL CARCINOMA
     Dosage: ?          QUANTITY:1 SACHET;OTHER FREQUENCY:5 DAYS /WK X 6 WKS;?
     Route: 061
     Dates: start: 20190115, end: 20190301

REACTIONS (2)
  - Plasma cell myeloma [None]
  - Light chain analysis increased [None]

NARRATIVE: CASE EVENT DATE: 20190801
